FAERS Safety Report 14532363 (Version 1)
Quarter: 2018Q1

REPORT INFORMATION
  Report Type: Spontaneous
  Country: US (occurrence: US)
  Receive Date: 20180214
  Receipt Date: 20180214
  Transmission Date: 20180509
  Serious: Yes (Hospitalization)
  Sender: FDA-Public Use
  Company Number: US-THE PROACTIV LLC-2041983

PATIENT
  Age: 15 Year
  Sex: Female

DRUGS (7)
  1. PROACTIV MD DAILY OIL CONTROL SPF 30 [Concomitant]
     Active Substance: AVOBENZONE\OCTISALATE\OCTOCRYLENE
     Route: 061
  2. PROACTIV MD BALANCING TONER [Suspect]
     Active Substance: COSMETICS
     Route: 061
  3. PROACTIV EYE BRIGHTENING SERUM [Suspect]
     Active Substance: COSMETICS
     Route: 061
  4. PROACTIV MD DEEP CLEANSING FACE WASH [Suspect]
     Active Substance: COSMETICS
  5. PROACTIV MOISTURE REPAIR [Suspect]
     Active Substance: COSMETICS
     Route: 061
  6. PROACTIV SOLUTION DEEP CLEANSING WASH [Suspect]
     Active Substance: SALICYLIC ACID
     Route: 061
  7. ADAPALENE. [Concomitant]
     Active Substance: ADAPALENE
     Route: 061

REACTIONS (2)
  - Hypersensitivity [Unknown]
  - Rash [Unknown]
